FAERS Safety Report 12870299 (Version 1)
Quarter: 2016Q4

REPORT INFORMATION
  Report Type: Spontaneous
  Country: CN (occurrence: CN)
  Receive Date: 20161021
  Receipt Date: 20161021
  Transmission Date: 20170207
  Serious: Yes (Other)
  Sender: FDA-Public Use
  Company Number: CN-GLAXOSMITHKLINE-CN2016GSK153343

PATIENT
  Age: 26 Year
  Sex: Female
  Weight: 40 kg

DRUGS (1)
  1. BACTROBAN [Suspect]
     Active Substance: MUPIROCIN\MUPIROCIN CALCIUM
     Indication: INFECTION
     Dosage: 1 G, TID
     Route: 067
     Dates: start: 20160624, end: 20160624

REACTIONS (4)
  - Vulval haemorrhage [Unknown]
  - Vulval ulceration [Unknown]
  - Vulvovaginal pruritus [Recovered/Resolved]
  - Genital rash [Unknown]

NARRATIVE: CASE EVENT DATE: 20160624
